FAERS Safety Report 8036481-4 (Version None)
Quarter: 2012Q1

REPORT INFORMATION
  Report Type: 
  Country: None (occurrence: None)
  Receive Date: 20120109
  Receipt Date: 20111228
  Transmission Date: 20120608
  Serious: Yes (Other)
  Sender: FDA-Public Use
  Company Number: DSA_48703_2012

PATIENT
  Age: 74 Year
  Sex: Female

DRUGS (8)
  1. ENALAPRIL MALEATE AND HYDROCHLOROTHIAZIDE [Suspect]
     Indication: HYPERTENSION
     Dosage: (DF ORAL)
     Route: 048
     Dates: start: 19910101
  2. EZETIMIBE [Concomitant]
  3. PIROXICAM [Concomitant]
  4. MOPRAL /00661201/ [Concomitant]
  5. MEDIATENSYL /00631801/ [Concomitant]
  6. TAKADOL [Concomitant]
  7. DURAGESIC-100 [Concomitant]
  8. AERIUS /01398501/ [Concomitant]

REACTIONS (4)
  - VENOUS INSUFFICIENCY [None]
  - ECZEMA [None]
  - DRY SKIN [None]
  - RENAL FAILURE CHRONIC [None]
